FAERS Safety Report 10886613 (Version 2)
Quarter: 2015Q1

REPORT INFORMATION
  Report Type: Spontaneous
  Country: CH (occurrence: CH)
  Receive Date: 20150304
  Receipt Date: 20150331
  Transmission Date: 20150721
  Serious: Yes (Hospitalization)
  Sender: FDA-Public Use
  Company Number: CH-BAYER-2015-027932

PATIENT
  Age: 46 Year
  Sex: Male

DRUGS (5)
  1. ASPIRIN CARDIO [Suspect]
     Active Substance: ASPIRIN
     Dosage: 100 MG, QD
     Route: 048
     Dates: end: 20150209
  2. PLAVIX [Suspect]
     Active Substance: CLOPIDOGREL BISULFATE
     Dosage: 1 DF, QD
     Route: 048
  3. COVERSUM [Concomitant]
     Active Substance: PERINDOPRIL
     Dosage: UNK, UNK
  4. CONCOR [Concomitant]
     Active Substance: BISOPROLOL FUMARATE
  5. SORTIS [Concomitant]
     Active Substance: ATORVASTATIN

REACTIONS (3)
  - Haemorrhagic anaemia [Recovered/Resolved]
  - Duodenal ulcer [Recovering/Resolving]
  - Shock haemorrhagic [Recovered/Resolved]

NARRATIVE: CASE EVENT DATE: 201502
